FAERS Safety Report 13739723 (Version 1)
Quarter: 2017Q3

REPORT INFORMATION
  Report Type: Spontaneous
  Country: US (occurrence: US)
  Receive Date: 20170710
  Receipt Date: 20170710
  Transmission Date: 20171127
  Serious: Yes (Hospitalization, Other)
  Sender: FDA-Public Use
  Company Number: None

PATIENT
  Age: 38 Year
  Sex: Female

DRUGS (2)
  1. BUPRENORPHINE/NALOXONE 8-2 MG TABS TEVA [Suspect]
     Active Substance: BUPRENORPHINE HYDROCHLORIDE\NALOXONE HYDROCHLORIDE
     Indication: DRUG DEPENDENCE
     Dosage: 8-2MG 2.5 SL
     Route: 060
     Dates: start: 20150514
  2. SUBOXONE [Suspect]
     Active Substance: BUPRENORPHINE HYDROCHLORIDE\NALOXONE HYDROCHLORIDE
     Indication: DRUG DEPENDENCE
     Dosage: 8-2 MG 2.5 SL
     Route: 060
     Dates: start: 20160601

REACTIONS (3)
  - Nephrolithiasis [None]
  - Nausea [None]
  - Headache [None]

NARRATIVE: CASE EVENT DATE: 20170608
